FAERS Safety Report 8443162-1 (Version None)
Quarter: 2012Q2

REPORT INFORMATION
  Report Type: 
  Country: None (occurrence: None)
  Receive Date: 20120615
  Receipt Date: 20120605
  Transmission Date: 20120825
  Serious: Yes (Hospitalization, Other)
  Sender: FDA-Public Use
  Company Number: US-RB-025592-11

PATIENT
  Age: 24 Year
  Sex: Female

DRUGS (3)
  1. SUBOXONE [Suspect]
     Indication: PRODUCT USED FOR UNKNOWN INDICATION
     Dosage: DOSING DETAILS NOT PROVIDED
     Route: 065
  2. SUBOXONE [Suspect]
     Indication: DRUG DEPENDENCE
     Dosage: PRESCRIBED 16MG DAILY BUT TAKES LESS THAN PRESCRIBED - 8MG DAILY
     Route: 060
     Dates: start: 20110201
  3. SUBOXONE [Suspect]
     Route: 065

REACTIONS (15)
  - BACK PAIN [None]
  - WRONG TECHNIQUE IN DRUG USAGE PROCESS [None]
  - ADRENAL MASS [None]
  - HORMONE LEVEL ABNORMAL [None]
  - UNDERDOSE [None]
  - NECK PAIN [None]
  - SUBSTANCE ABUSE [None]
  - CONSTIPATION [None]
  - PULMONARY MASS [None]
  - WEIGHT DECREASED [None]
  - BENIGN BREAST NEOPLASM [None]
  - LIPOMA [None]
  - FATIGUE [None]
  - MENSTRUAL DISORDER [None]
  - ENAMEL ANOMALY [None]
